FAERS Safety Report 6570448-8 (Version None)
Quarter: 2010Q1

REPORT INFORMATION
  Report Type: 
  Country: None (occurrence: None)
  Receive Date: 20100204
  Receipt Date: 20090623
  Transmission Date: 20100710
  Serious: No
  Sender: FDA-Public Use
  Company Number: A0791210A

PATIENT
  Age: 73 Year
  Sex: Female

DRUGS (4)
  1. ARIXTRA [Suspect]
     Route: 058
     Dates: start: 20090420, end: 20090611
  2. LASIX [Concomitant]
  3. POTASSIUM [Concomitant]
  4. COD LIVER OIL [Concomitant]

REACTIONS (9)
  - ACCIDENTAL OVERDOSE [None]
  - ARTHRALGIA [None]
  - DRUG LEVEL INCREASED [None]
  - FATIGUE [None]
  - GAIT DISTURBANCE [None]
  - HEADACHE [None]
  - JOINT SWELLING [None]
  - PAIN IN EXTREMITY [None]
  - URINARY INCONTINENCE [None]
